FAERS Safety Report 5148202-3 (Version None)
Quarter: 2006Q4

REPORT INFORMATION
  Report Type: 
  Country: None (occurrence: None)
  Receive Date: 20060918
  Receipt Date: 20060404
  Transmission Date: 20070319
  Serious: Yes (Other)
  Sender: FDA-Public Use
  Company Number: US-JNJFOC-20060203215

PATIENT
  Age: 42 Year
  Sex: Female
  Weight: 67.586 kg

DRUGS (5)
  1. TOPAMAX [Suspect]
     Indication: DRUG USE FOR UNKNOWN INDICATION
     Dosage: 50 MG, 2 IN 1 DAY
  2. IMITREX [Concomitant]
  3. EFFEXOR [Concomitant]
  4. NADALOL () NADOLOL [Concomitant]
  5. LIPITOR [Concomitant]

REACTIONS (2)
  - HYPOKALAEMIA [None]
  - PANCREATITIS [None]
